FAERS Safety Report 15152696 (Version 1)
Quarter: 2018Q3

REPORT INFORMATION
  Report Type: Spontaneous
  Country: US (occurrence: US)
  Receive Date: 20180619
  Receipt Date: 20180619
  Transmission Date: 20181010
  Serious: No
  Sender: FDA-Public Use
  Company Number: None

PATIENT
  Age: 62 Year
  Sex: Female

DRUGS (1)
  1. TENOFOVIR DF TAB 300MG [Suspect]
     Active Substance: TENOFOVIR DISOPROXIL FUMARATE

REACTIONS (5)
  - Abnormal faeces [None]
  - Product substitution issue [None]
  - Infrequent bowel movements [None]
  - Diarrhoea [None]
  - Abdominal discomfort [None]

NARRATIVE: CASE EVENT DATE: 20180201
